FAERS Safety Report 19502928 (Version 1)
Quarter: 2021Q3

REPORT INFORMATION
  Report Type: Spontaneous
  Country: CH (occurrence: CH)
  Receive Date: 20210707
  Receipt Date: 20210707
  Transmission Date: 20211014
  Serious: Yes (Other)
  Sender: FDA-Public Use
  Company Number: CH-PURDUE-USA-2021-0272638

PATIENT
  Age: 78 Year
  Sex: Female
  Weight: 54 kg

DRUGS (17)
  1. TRITTICO [Suspect]
     Active Substance: TRAZODONE HYDROCHLORIDE
     Indication: DEPRESSION
     Dosage: 25 MG, NOCTE
     Route: 048
  2. LORAZEPAM. [Concomitant]
     Active Substance: LORAZEPAM
     Dosage: 1 MG, UNK
  3. CALCIMAGON D3 [Concomitant]
     Active Substance: CALCIUM\CHOLECALCIFEROL
     Dosage: UNK
  4. PARACETAMOL [Concomitant]
     Active Substance: ACETAMINOPHEN
     Dosage: 1 G, TID
  5. DAFLON                             /00426001/ [Concomitant]
     Active Substance: DIOSMIN
     Dosage: 500 MG, BID
  6. QUETIAPINE. [Concomitant]
     Active Substance: QUETIAPINE
     Dosage: 25 MG, TID
     Dates: start: 20210413
  7. HALDOL [Suspect]
     Active Substance: HALOPERIDOL
     Indication: DEMENTIA
     Dosage: 2.5 MG, BID
     Route: 048
     Dates: start: 20210409
  8. AKINETON [Suspect]
     Active Substance: BIPERIDEN HYDROCHLORIDE
     Indication: EXTRAPYRAMIDAL DISORDER
     Dosage: 4 MG, UNK
     Route: 048
     Dates: start: 20210412
  9. MST CONTINUS [Suspect]
     Active Substance: MORPHINE SULFATE
     Indication: PAIN
     Dosage: 5 MG, SINGLE
     Route: 048
     Dates: start: 20210415, end: 20210415
  10. LORAZEPAM. [Concomitant]
     Active Substance: LORAZEPAM
     Dosage: 1 MG, TID
     Dates: start: 20210413
  11. HALDOL [Suspect]
     Active Substance: HALOPERIDOL
     Dosage: 0.5 MG, BID
     Route: 048
     Dates: start: 20210408, end: 20210408
  12. AKINETON [Suspect]
     Active Substance: BIPERIDEN HYDROCHLORIDE
     Indication: EXTRAPYRAMIDAL DISORDER
     Dosage: 2 MG, UNK
     Route: 048
     Dates: start: 20210412, end: 20210413
  13. HALDOL [Suspect]
     Active Substance: HALOPERIDOL
     Indication: AGITATION
     Dosage: 2.5 MG, IN TOTAL
     Route: 030
     Dates: start: 20210409, end: 20210409
  14. DISTRANEURIN                       /00027501/ [Concomitant]
     Active Substance: CLOMETHIAZOLE
     Dosage: 4 TABLET, DAILY
  15. IMOVANE [Concomitant]
     Active Substance: ZOPICLONE
     Dosage: 7.5 MG, PRN
  16. VALIUM [Concomitant]
     Active Substance: DIAZEPAM
     Indication: AGITATION
     Dosage: 5 MG, UNK
     Route: 030
     Dates: start: 20210409
  17. FUROSEMIDE. [Concomitant]
     Active Substance: FUROSEMIDE
     Indication: PRODUCT USED FOR UNKNOWN INDICATION
     Route: 065

REACTIONS (2)
  - Intestinal pseudo-obstruction [Recovered/Resolved]
  - Neuroleptic malignant syndrome [Recovered/Resolved]

NARRATIVE: CASE EVENT DATE: 20210412
